FAERS Safety Report 9185070 (Version 1)
Quarter: 2013Q1

REPORT INFORMATION
  Report Type: Spontaneous
  Country: US (occurrence: US)
  Receive Date: 20130325
  Receipt Date: 20130325
  Transmission Date: 20140127
  Serious: Yes (Hospitalization)
  Sender: FDA-Public Use
  Company Number: US-BAYER-2013-034641

PATIENT
  Age: 29 Year
  Sex: Female

DRUGS (4)
  1. YASMIN [Suspect]
  2. NYSTATIN [Concomitant]
  3. WELLBUTRIN SR [Concomitant]
  4. XANAX [Concomitant]

REACTIONS (1)
  - Pulmonary embolism [None]
